FAERS Safety Report 11981778 (Version 1)
Quarter: 2016Q1

REPORT INFORMATION
  Report Type: Spontaneous
  Country: PA (occurrence: PA)
  Receive Date: 20160131
  Receipt Date: 20160131
  Transmission Date: 20160526
  Serious: Yes (Other)
  Sender: FDA-Public Use
  Company Number: PA-ROCHE-1701490

PATIENT
  Age: 75 Year
  Sex: Female
  Weight: 56.5 kg

DRUGS (6)
  1. DIPHENHYDRAMINE. [Concomitant]
     Active Substance: DIPHENHYDRAMINE
     Indication: PREMEDICATION
     Dosage: FOR 1 DAY IN EACH CYCLE
     Route: 042
     Dates: start: 20160115, end: 20160115
  2. HYDROCORTISONE. [Concomitant]
     Active Substance: HYDROCORTISONE
     Indication: PREMEDICATION
     Dosage: FOR 1 DAY IN EACH CYCLE
     Route: 042
     Dates: start: 20160115, end: 20160115
  3. MABTHERA [Suspect]
     Active Substance: RITUXIMAB
     Indication: LYMPHOMA
     Route: 058
  4. KYTRIL [Suspect]
     Active Substance: GRANISETRON HYDROCHLORIDE
     Indication: PREMEDICATION
     Dosage: 3MG/DAY FOR 2 DAYS IN EACH CYCLE?MOST RECENT DOSE ON 16/JAN/2016.
     Route: 042
     Dates: start: 20160115
  5. PARACETAMOL [Concomitant]
     Active Substance: ACETAMINOPHEN
     Indication: PREMEDICATION
     Dosage: FOR 1 DAY IN EACH CYCLE
     Route: 048
     Dates: start: 20160115, end: 20160115
  6. BENDAMUSTINE [Concomitant]
     Active Substance: BENDAMUSTINE
     Indication: LYMPHOMA
     Dosage: 140 MG/DAY FOR 2 DAYS IN EACH CYCLE
     Route: 042
     Dates: start: 20160115

REACTIONS (2)
  - Application site erythema [Recovered/Resolved]
  - Application site pain [Recovered/Resolved]

NARRATIVE: CASE EVENT DATE: 20160118
